FAERS Safety Report 10308324 (Version 1)
Quarter: 2014Q2

REPORT INFORMATION
  Report Type: Spontaneous
  Country: IT (occurrence: None)
  Receive Date: 20140630
  Receipt Date: 20140630
  Transmission Date: 20141212
  Serious: Yes (Other)
  Sender: FDA-Public Use
  Company Number: LIT-040-14-IT

PATIENT
  Age: 70 Year
  Sex: Male

DRUGS (1)
  1. HUMAN NORMAL IMMUNOGLOBULIN (IV) (TRADENAME UNKNOWN) [Suspect]
     Indication: CHRONIC INFLAMMATORY DEMYELINATING POLYRADICULONEUROPATHY
     Dosage: 0.4 MG/KG (5X 1 / TOTAL)
     Route: 042

REACTIONS (2)
  - Venous thrombosis limb [None]
  - Pulmonary embolism [None]
